FAERS Safety Report 25525407 (Version 1)
Quarter: 2025Q3

REPORT INFORMATION
  Report Type: Spontaneous
  Country: EU (occurrence: EU)
  Receive Date: 20250707
  Receipt Date: 20250707
  Transmission Date: 20251020
  Serious: Yes (Other)
  Sender: MYLAN
  Company Number: EU-MYLANLABS-2025M1055370

PATIENT
  Age: 59 Year
  Sex: Female

DRUGS (4)
  1. METHIMAZOLE [Suspect]
     Active Substance: METHIMAZOLE
     Indication: Hyperthyroidism
     Dosage: 5 MILLIGRAM, TID (THREE TIMES A DAY)
  2. METHIMAZOLE [Suspect]
     Active Substance: METHIMAZOLE
     Dosage: 5 MILLIGRAM, TID (THREE TIMES A DAY)
     Route: 065
  3. METHIMAZOLE [Suspect]
     Active Substance: METHIMAZOLE
     Dosage: 5 MILLIGRAM, TID (THREE TIMES A DAY)
     Route: 065
  4. METHIMAZOLE [Suspect]
     Active Substance: METHIMAZOLE
     Dosage: 5 MILLIGRAM, TID (THREE TIMES A DAY)

REACTIONS (1)
  - Drug ineffective [Unknown]
